FAERS Safety Report 9411552 (Version 2)
Quarter: 2013Q3

REPORT INFORMATION
  Report Type: Spontaneous
  Country: US (occurrence: US)
  Receive Date: 20130722
  Receipt Date: 20130723
  Transmission Date: 20140515
  Serious: Yes (Other)
  Sender: FDA-Public Use
  Company Number: US-ROCHE-1250789

PATIENT
  Sex: Female

DRUGS (4)
  1. VALIUM [Suspect]
     Indication: PRODUCT USED FOR UNKNOWN INDICATION
     Route: 065
  2. METHADONE [Concomitant]
  3. OXYCODONE [Concomitant]
  4. ELAVIL (UNITED STATES) [Concomitant]

REACTIONS (2)
  - Loss of consciousness [Unknown]
  - Memory impairment [Unknown]
